FAERS Safety Report 6254478-1 (Version None)
Quarter: 2009Q3

REPORT INFORMATION
  Report Type: 
  Country: None (occurrence: None)
  Receive Date: 20090702
  Receipt Date: 20090626
  Transmission Date: 20100115
  Serious: Yes (Hospitalization)
  Sender: FDA-Public Use
  Company Number: FR-BRISTOL-MYERS SQUIBB COMPANY-14669295

PATIENT
  Age: 5 Decade
  Sex: Female

DRUGS (4)
  1. ABILIFY [Suspect]
     Dates: end: 20090603
  2. RISPERDAL [Suspect]
     Dates: start: 20090610, end: 20090611
  3. LOXAPAC [Suspect]
  4. THIAZIDE [Concomitant]

REACTIONS (3)
  - HYPONATRAEMIA [None]
  - POLYDIPSIA PSYCHOGENIC [None]
  - THIRST [None]
